FAERS Safety Report 5760600-3 (Version None)
Quarter: 2008Q2

REPORT INFORMATION
  Report Type: 
  Country: None (occurrence: None)
  Receive Date: 20080602
  Receipt Date: 20080514
  Transmission Date: 20081010
  Serious: Yes (Hospitalization)
  Sender: FDA-Public Use
  Company Number: 1-16142723

PATIENT
  Sex: Male

DRUGS (1)
  1. CARBAMAZEPINE [Suspect]
     Dosage: ORAL
     Route: 048

REACTIONS (9)
  - ANOREXIA [None]
  - BRAIN OEDEMA [None]
  - CONVULSION [None]
  - DEEP VEIN THROMBOSIS [None]
  - HYPOXIA [None]
  - LOCALISED OEDEMA [None]
  - MUSCULAR WEAKNESS [None]
  - NAUSEA [None]
  - VOMITING [None]
